FAERS Safety Report 9036607 (Version 1)
Quarter: 2013Q1

REPORT INFORMATION
  Report Type: Spontaneous
  Country: US (occurrence: None)
  Receive Date: 20130117
  Receipt Date: 20130117
  Transmission Date: 20140127
  Serious: Yes (Hospitalization, Other)
  Sender: FDA-Public Use
  Company Number: None

PATIENT
  Age: 70 Year
  Sex: Male
  Weight: 164.5 kg

DRUGS (1)
  1. OSELTAMIVIR [Suspect]
     Indication: PNEUMONIA INFLUENZAL
     Dosage: 3 DOSES
     Route: 048
     Dates: start: 20130108, end: 20130110

REACTIONS (2)
  - Rhabdomyolysis [None]
  - Renal failure [None]
